FAERS Safety Report 6886470-8 (Version None)
Quarter: 2010Q3

REPORT INFORMATION
  Report Type: 
  Country: None (occurrence: None)
  Receive Date: 20100729
  Receipt Date: 20090709
  Transmission Date: 20110219
  Serious: No
  Sender: FDA-Public Use
  Company Number: US-PFIZER INC-2009184263

PATIENT
  Sex: Female

DRUGS (4)
  1. CELEBREX [Suspect]
     Indication: ARTHRITIS
     Dosage: UNK
  2. LIPITOR [Suspect]
  3. ACCUPRIL [Suspect]
  4. ACETYLSALICYLIC ACID SRT [Suspect]
     Dosage: UNK

REACTIONS (2)
  - FIBROMYALGIA [None]
  - GASTRITIS [None]
